FAERS Safety Report 18491906 (Version 2)
Quarter: 2020Q4

REPORT INFORMATION
  Report Type: Spontaneous
  Country: JP (occurrence: JP)
  Receive Date: 20201111
  Receipt Date: 20201204
  Transmission Date: 20210114
  Serious: Yes (Hospitalization, Other)
  Sender: FDA-Public Use
  Company Number: JP-ASTRAZENECA-2020SF47704

PATIENT
  Age: 71 Year
  Sex: Female

DRUGS (1)
  1. BENRALIZUMAB. [Suspect]
     Active Substance: BENRALIZUMAB
     Indication: ASTHMA
     Dosage: 30 MG
     Route: 058
     Dates: start: 20190801, end: 20200220

REACTIONS (1)
  - Acquired haemophilia [Not Recovered/Not Resolved]

NARRATIVE: CASE EVENT DATE: 20200320
